FAERS Safety Report 24310020 (Version 2)
Quarter: 2024Q3

REPORT INFORMATION
  Report Type: Spontaneous
  Country: US (occurrence: US)
  Receive Date: 20240912
  Receipt Date: 20240926
  Transmission Date: 20241017
  Serious: Yes (Life-Threatening, Hospitalization)
  Sender: TEVA
  Company Number: US-TEVA-VS-3240326

PATIENT
  Age: 45 Year
  Sex: Female

DRUGS (1)
  1. LAMOTRIGINE [Suspect]
     Active Substance: LAMOTRIGINE
     Indication: Product used for unknown indication
     Route: 065

REACTIONS (8)
  - Haemophagocytic lymphohistiocytosis [Recovering/Resolving]
  - Encephalopathy [Unknown]
  - Ventricular extrasystoles [Unknown]
  - Ventricular fibrillation [Recovered/Resolved]
  - Haemodynamic instability [Unknown]
  - Shock [Unknown]
  - Stress cardiomyopathy [Recovering/Resolving]
  - Cardiac arrest [Recovered/Resolved]
